FAERS Safety Report 17168911 (Version 1)
Quarter: 2019Q4

REPORT INFORMATION
  Report Type: Spontaneous
  Country: HU (occurrence: HU)
  Receive Date: 20191218
  Receipt Date: 20191218
  Transmission Date: 20200122
  Serious: Yes (Hospitalization, Other)
  Sender: FDA-Public Use
  Company Number: HU-ALVOGEN-2019-ALVOGEN-102156

PATIENT
  Age: 41 Year
  Sex: Female

DRUGS (3)
  1. EVEROLIMUS. [Suspect]
     Active Substance: EVEROLIMUS
     Indication: BREAST CANCER
     Route: 065
     Dates: start: 2016
  2. EXEMESTANE. [Suspect]
     Active Substance: EXEMESTANE
     Indication: BREAST CANCER
     Route: 065
     Dates: start: 2016
  3. FULVESTRANT. [Suspect]
     Active Substance: FULVESTRANT
     Indication: PRODUCT USED FOR UNKNOWN INDICATION
     Route: 065

REACTIONS (13)
  - Anaemia [Unknown]
  - Leukopenia [Unknown]
  - Metastases to bone [Unknown]
  - Tubulointerstitial nephritis [Unknown]
  - Pyrexia [Unknown]
  - Diarrhoea [Unknown]
  - Proteinuria [Unknown]
  - Rash [Unknown]
  - Metastases to lung [Unknown]
  - Breast mass [Unknown]
  - Thrombocytopenia [Unknown]
  - Ascariasis [Unknown]
  - Blood lactate dehydrogenase increased [Unknown]

NARRATIVE: CASE EVENT DATE: 2018
